FAERS Safety Report 6138577-0 (Version None)
Quarter: 2009Q1

REPORT INFORMATION
  Report Type: 
  Country: None (occurrence: None)
  Receive Date: 20090331
  Receipt Date: 20090320
  Transmission Date: 20090719
  Serious: Yes (Disabling, Other)
  Sender: FDA-Public Use
  Company Number: AU-PFIZER INC-2008052318

PATIENT

DRUGS (21)
  1. LINEZOLID [Suspect]
     Dosage: 600 MG, 2X/DAY
     Route: 042
     Dates: start: 20080609, end: 20080614
  2. IDARUBICIN HCL [Suspect]
     Indication: ACUTE MYELOID LEUKAEMIA
     Dosage: 17 MG, DAILY
     Route: 042
     Dates: start: 20080506
  3. CYTARABINE [Suspect]
     Indication: ACUTE MYELOID LEUKAEMIA
     Dosage: 5700 MG, BD, EVERY 2ND DAY
     Route: 042
     Dates: start: 20080506
  4. ETOPOSIDE [Suspect]
     Indication: ACUTE MYELOID LEUKAEMIA
     Dosage: 140 MG, DAILY
     Route: 042
     Dates: start: 20080506
  5. PEGFILGRASTIM [Suspect]
     Indication: NEUTROPENIA
     Dosage: 6 MG, ONCE
     Route: 058
     Dates: start: 20080513
  6. BLINDED THERAPY [Suspect]
     Indication: MUCOSAL INFLAMMATION
     Dosage: 5 MG (5 MG), DAILY
     Route: 042
     Dates: start: 20080502
  7. FILGRASTIM [Suspect]
     Indication: ACUTE MYELOID LEUKAEMIA
     Dosage: 480 MG (480 MG) DAILY
     Route: 058
     Dates: start: 20080604
  8. VANCOMYCIN HCL [Concomitant]
     Dosage: 1 G, 2X/DAY
     Route: 042
     Dates: start: 20080526, end: 20080609
  9. NORETHINDRONE ACETATE [Concomitant]
     Dosage: 5 MG, DAILY
     Route: 048
     Dates: start: 20080511, end: 20080609
  10. VALTREX [Concomitant]
     Dosage: 500 MG, 2X/DAY
     Route: 048
     Dates: start: 20080504, end: 20080609
  11. FLUCONAZOLE [Concomitant]
     Dosage: 200 MG, 2X/DAY
     Route: 048
     Dates: start: 20080508, end: 20080609
  12. PARACETAMOL [Concomitant]
     Dosage: 1 G, 4X/DAY
     Route: 048
     Dates: start: 20080516, end: 20080614
  13. PROMETHAZINE HCL [Concomitant]
     Dosage: 10 MG, 3X/DAY
     Route: 048
     Dates: start: 20080516, end: 20080612
  14. NILSTAT [Concomitant]
     Dosage: 1 ML, 4X/DAY
     Route: 048
     Dates: start: 20080522
  15. AZTREONAM [Concomitant]
     Dosage: 2 G, 3X/DAY
     Route: 042
     Dates: start: 20080508, end: 20080610
  16. METRONIDAZOLE [Concomitant]
     Dosage: 500 MG, 3X/DAY
     Route: 042
     Dates: start: 20080526, end: 20080610
  17. SLOW-K [Concomitant]
     Dosage: 600 MG, 3X/DAY
     Route: 048
     Dates: start: 20080610, end: 20080614
  18. VALACYCLOVIR HCL [Concomitant]
     Dosage: 500 MG, 2X/DAY
     Route: 048
     Dates: start: 20080609, end: 20080612
  19. NORETHINDRONE ACETATE [Concomitant]
     Dosage: 5 MG, DAILY
     Route: 048
     Dates: start: 20080610, end: 20080613
  20. TIGECYCLINE [Concomitant]
     Dosage: 50 MG, 2X/DAY
     Route: 042
     Dates: start: 20080614, end: 20080615
  21. GENTAMICIN [Concomitant]
     Dosage: 320 MG, DAILY
     Route: 042
     Dates: start: 20080525, end: 20080609

REACTIONS (1)
  - PSYCHOTIC DISORDER [None]
